FAERS Safety Report 4831806-2 (Version None)
Quarter: 2005Q4

REPORT INFORMATION
  Report Type: 
  Country: None (occurrence: None)
  Receive Date: 20051118
  Receipt Date: 20051110
  Transmission Date: 20060501
  Serious: Yes (Death, Other)
  Sender: FDA-Public Use
  Company Number: PHRM2005FR02935

PATIENT
  Age: 52 Year
  Sex: Female

DRUGS (3)
  1. ZOMETA [Suspect]
     Indication: METASTASES TO BONE
     Dosage: 4 MG EVERY THREE WEEKS
     Route: 042
     Dates: start: 20030915, end: 20050415
  2. TAXOTERE [Suspect]
     Indication: LUNG CANCER METASTATIC
     Route: 042
     Dates: start: 20030915, end: 20050726
  3. IRESSA [Concomitant]
     Indication: LUNG CANCER METASTATIC

REACTIONS (3)
  - DEATH [None]
  - OSTEITIS [None]
  - OSTEONECROSIS [None]
